FAERS Safety Report 7921099-1 (Version None)
Quarter: 2011Q4

REPORT INFORMATION
  Report Type: 
  Country: None (occurrence: None)
  Receive Date: 20111117
  Receipt Date: 20111108
  Transmission Date: 20120403
  Serious: Yes (Hospitalization, Other)
  Sender: FDA-Public Use
  Company Number: US-BAYER-2011-109930

PATIENT
  Age: 37 Year
  Sex: Female

DRUGS (7)
  1. MECLIZINE [Concomitant]
     Indication: ANTIALLERGIC THERAPY
     Dosage: 12.5 MG, UNK
  2. DOXEPIN HCL [Concomitant]
     Indication: ANTIDEPRESSANT THERAPY
     Dosage: 75 MG/24HR, UNK
  3. YAZ [Suspect]
     Dosage: UNK
     Dates: end: 20100101
  4. ALPRAZOLAM [Concomitant]
     Indication: SEDATIVE THERAPY
     Dosage: 0.25 MG, UNK
  5. VALTREX [Concomitant]
     Indication: GENITAL HERPES
     Dosage: 500 MG, UNK
     Dates: start: 20060101
  6. PROPOXY [Concomitant]
     Indication: PAIN
     Dosage: 65 MG, UNK
  7. AMPHETAMINE ER [Concomitant]
     Indication: CENTRAL NERVOUS SYSTEM STIMULATION

REACTIONS (5)
  - PULMONARY EMBOLISM [None]
  - ALOPECIA [None]
  - DEEP VEIN THROMBOSIS [None]
  - HIP DEFORMITY [None]
  - COMPLEX REGIONAL PAIN SYNDROME [None]
